FAERS Safety Report 17431501 (Version 1)
Quarter: 2020Q1

REPORT INFORMATION
  Report Type: Spontaneous
  Country: IT (occurrence: IT)
  Receive Date: 20200218
  Receipt Date: 20200218
  Transmission Date: 20200409
  Serious: Yes (Other)
  Sender: FDA-Public Use
  Company Number: IT-MYLANLABS-2020M1018169

PATIENT
  Sex: Male

DRUGS (1)
  1. QUETIAPINA MYLAN [Suspect]
     Active Substance: QUETIAPINE
     Indication: DEMENTIA ALZHEIMER^S TYPE
     Route: 048

REACTIONS (2)
  - Blood pressure decreased [Recovered/Resolved]
  - Bradycardia [Recovered/Resolved]
